FAERS Safety Report 17756827 (Version 1)
Quarter: 2020Q2

REPORT INFORMATION
  Report Type: Spontaneous
  Country: DE (occurrence: DE)
  Receive Date: 20200507
  Receipt Date: 20200507
  Transmission Date: 20200714
  Serious: Yes (Other)
  Sender: FDA-Public Use
  Company Number: DE-PFIZER INC-2020180345

PATIENT
  Age: 86 Year
  Sex: Male

DRUGS (1)
  1. LANTAREL [Suspect]
     Active Substance: METHOTREXATE SODIUM
     Dosage: 10 MG, 2X/WEEK

REACTIONS (4)
  - Oral mucosal blistering [Recovered/Resolved]
  - Oropharyngeal blistering [Recovered/Resolved]
  - Inflammatory marker increased [Recovered/Resolved]
  - Off label use [Unknown]
